FAERS Safety Report 13104176 (Version 1)
Quarter: 2017Q1

REPORT INFORMATION
  Report Type: Spontaneous
  Country: GB (occurrence: GB)
  Receive Date: 20170111
  Receipt Date: 20170111
  Transmission Date: 20170428
  Serious: Yes (Hospitalization, Other)
  Sender: FDA-Public Use
  Company Number: GB-BAUSCH-BL-2017-000616

PATIENT
  Sex: Female

DRUGS (1)
  1. PREDNISOLONE. [Suspect]
     Active Substance: PREDNISOLONE
     Indication: PRODUCT USED FOR UNKNOWN INDICATION
     Route: 065

REACTIONS (7)
  - Drug ineffective [Unknown]
  - Haemorrhage [Recovered/Resolved]
  - Pollakiuria [Unknown]
  - Abdominal discomfort [Not Recovered/Not Resolved]
  - Muscle spasms [Recovered/Resolved]
  - Exposure during pregnancy [Unknown]
  - Asthenia [Unknown]
